FAERS Safety Report 9680281 (Version 14)
Quarter: 2015Q4

REPORT INFORMATION
  Report Type: Spontaneous
  Country: US (occurrence: US)
  Receive Date: 20131111
  Receipt Date: 20151016
  Transmission Date: 20160305
  Serious: Yes (Other)
  Sender: FDA-Public Use
  Company Number: US-ROCHE-1115946

PATIENT
  Age: 54 Year
  Sex: Female

DRUGS (3)
  1. BONIVA [Suspect]
     Active Substance: IBANDRONATE SODIUM
     Route: 048
     Dates: start: 2010
  2. BONIVA [Suspect]
     Active Substance: IBANDRONATE SODIUM
     Indication: OSTEOPOROSIS
     Route: 048
     Dates: start: 200906, end: 20100920
  3. FOSAMAX [Suspect]
     Active Substance: ALENDRONATE SODIUM
     Indication: OSTEOPOROSIS
     Route: 048
     Dates: start: 200905

REACTIONS (10)
  - Osteonecrosis of jaw [Not Recovered/Not Resolved]
  - Osteomyelitis [Unknown]
  - Tooth disorder [Unknown]
  - Depression [Not Recovered/Not Resolved]
  - Pneumonia [Unknown]
  - Periostitis [Unknown]
  - Alveolar osteitis [Unknown]
  - Toothache [Unknown]
  - Otitis externa [Unknown]
  - Drug hypersensitivity [Unknown]

NARRATIVE: CASE EVENT DATE: 200907
